FAERS Safety Report 4964377-0 (Version None)
Quarter: 2006Q1

REPORT INFORMATION
  Report Type: 
  Country: None (occurrence: None)
  Receive Date: 20060331
  Receipt Date: 20060321
  Transmission Date: 20060701
  Serious: No
  Sender: FDA-Public Use
  Company Number: 06H-066-0306827-00

PATIENT
  Age: 55 Year
  Sex: Female

DRUGS (1)
  1. HEPARIN SODIUM INJECTION [Suspect]
     Indication: ANTICOAGULANT THERAPY

REACTIONS (7)
  - ANURIA [None]
  - DIALYSIS [None]
  - HEPARIN-INDUCED THROMBOCYTOPENIA [None]
  - RENAL ARTERY THROMBOSIS [None]
  - RENAL FAILURE [None]
  - SUBCLAVIAN VEIN THROMBOSIS [None]
  - WHITE CLOT SYNDROME [None]
